FAERS Safety Report 12068359 (Version 1)
Quarter: 2016Q1

REPORT INFORMATION
  Report Type: Spontaneous
  Country: US (occurrence: None)
  Receive Date: 20160209
  Receipt Date: 20160209
  Transmission Date: 20160526
  Serious: No
  Sender: FDA-Public Use
  Company Number: EN-16001

PATIENT

DRUGS (1)
  1. TRIAMCINOLONE DIACETATE 40 MG/ML ISOMERIC PHARMACY SOLUTIONS [Suspect]
     Active Substance: TRIAMCINOLONE DIACETATE

REACTIONS (1)
  - Injection site reaction [None]

NARRATIVE: CASE EVENT DATE: 20160122
